FAERS Safety Report 8874510 (Version 3)
Quarter: 2012Q4

REPORT INFORMATION
  Report Type: 
  Country: US (occurrence: US)
  Receive Date: 20121031
  Receipt Date: 20121223
  Transmission Date: 20130627
  Serious: No
  Sender: FDA-Public Use
  Company Number: US-009507513-1210USA013755

PATIENT
  Sex: Female

DRUGS (3)
  1. PEGINTRON [Suspect]
     Indication: HEPATITIS C
     Dosage: UNK
     Dates: start: 20121012
  2. RIBAVIRIN [Suspect]
     Indication: HEPATITIS C
     Dosage: 6 df, qd
     Dates: start: 20121012
  3. RIBAVIRIN [Suspect]
     Dosage: 3 df, qd

REACTIONS (12)
  - Pulmonary congestion [Unknown]
  - Rash pruritic [Unknown]
  - Oral pain [Unknown]
  - Oral pain [Unknown]
  - Anger [Unknown]
  - Anaemia [Unknown]
  - Anaemia [Unknown]
  - Anger [Unknown]
  - Rash [Unknown]
  - Rash [Recovered/Resolved]
  - Dyspnoea [Unknown]
  - Fatigue [Unknown]
